FAERS Safety Report 18357976 (Version 1)
Quarter: 2020Q4

REPORT INFORMATION
  Report Type: Other
  Country: US (occurrence: US)
  Receive Date: 20201008
  Receipt Date: 20201008
  Transmission Date: 20210114
  Serious: No
  Sender: FDA-Public Use
  Company Number: US-ROCHE-2690430

PATIENT
  Age: 47 Year
  Sex: Female
  Weight: 90.8 kg

DRUGS (3)
  1. ISOTRETINOIN. [Concomitant]
     Active Substance: ISOTRETINOIN
     Indication: ACNE
  2. EPINEPHRINE. [Concomitant]
     Active Substance: EPINEPHRINE
     Indication: FOOD ALLERGY
  3. OCREVUS [Suspect]
     Active Substance: OCRELIZUMAB
     Indication: RELAPSING-REMITTING MULTIPLE SCLEROSIS
     Dosage: HALF DOSE
     Route: 042
     Dates: start: 20200817

REACTIONS (13)
  - Pain [Recovered/Resolved]
  - Oropharyngeal pain [Recovered/Resolved]
  - White blood cell count decreased [Unknown]
  - Dyspnoea [Recovered/Resolved]
  - Chest discomfort [Recovered/Resolved]
  - Vitamin B12 decreased [Unknown]
  - Headache [Recovered/Resolved]
  - Oral herpes [Recovered/Resolved]
  - Angular cheilitis [Not Recovered/Not Resolved]
  - Fatigue [Not Recovered/Not Resolved]
  - Back pain [Recovered/Resolved]
  - Throat irritation [Recovered/Resolved]
  - Throat tightness [Recovered/Resolved]

NARRATIVE: CASE EVENT DATE: 20200818
